FAERS Safety Report 5315573-4 (Version None)
Quarter: 2007Q2

REPORT INFORMATION
  Report Type: 
  Country: None (occurrence: None)
  Receive Date: 20070503
  Receipt Date: 20070424
  Transmission Date: 20071010
  Serious: Yes (Hospitalization)
  Sender: FDA-Public Use
  Company Number: SE-JNJFOC-20070405284

PATIENT
  Age: 46 Year
  Sex: Female

DRUGS (6)
  1. REMICADE [Suspect]
     Indication: RHEUMATOID ARTHRITIS
     Route: 042
  2. NSAID [Concomitant]
  3. SALAZOPYRIN [Concomitant]
  4. LEVAXIN [Concomitant]
  5. SIMVASTATIN [Concomitant]
  6. VITAMINS [Concomitant]

REACTIONS (6)
  - ARTHRALGIA [None]
  - ATRIOVENTRICULAR BLOCK COMPLETE [None]
  - CONDITION AGGRAVATED [None]
  - INSOMNIA [None]
  - JOINT SWELLING [None]
  - SYNCOPE [None]
